FAERS Safety Report 5322496-3 (Version None)
Quarter: 2007Q2

REPORT INFORMATION
  Report Type: 
  Country: None (occurrence: None)
  Receive Date: 20070511
  Receipt Date: 20070501
  Transmission Date: 20071010
  Serious: No
  Sender: FDA-Public Use
  Company Number: US-MERCK-0703USA03909

PATIENT
  Age: 86 Year
  Sex: Female
  Weight: 75 kg

DRUGS (6)
  1. VYTORIN [Suspect]
     Indication: LIPIDS INCREASED
     Route: 048
     Dates: start: 20070115, end: 20070417
  2. OMEGA-3 MARINE TRIGLYCERIDES [Concomitant]
     Indication: LIPIDS INCREASED
     Route: 065
  3. GLUCOSAMINE [Concomitant]
     Indication: ARTHRALGIA
     Route: 065
  4. UBIDECARENONE [Concomitant]
     Route: 065
  5. ZOLOFT [Concomitant]
     Indication: DEPRESSION
     Route: 048
  6. ACIPHEX [Concomitant]
     Indication: GASTROOESOPHAGEAL REFLUX DISEASE
     Route: 048

REACTIONS (1)
  - MYALGIA [None]
